FAERS Safety Report 13358785 (Version 8)
Quarter: 2017Q4

REPORT INFORMATION
  Report Type: Report from Study
  Country: CH (occurrence: CH)
  Receive Date: 20170322
  Receipt Date: 20171024
  Transmission Date: 20180320
  Serious: Yes (Other)
  Sender: FDA-Public Use
  Company Number: CH-ROCHE-1618618

PATIENT
  Age: 59 Year
  Sex: Female
  Weight: 65 kg

DRUGS (142)
  1. OBINUTUZUMAB. [Suspect]
     Active Substance: OBINUTUZUMAB
     Indication: CHRONIC LYMPHOCYTIC LEUKAEMIA
     Dosage: C1D1?FREQUENCY: 1000 MG IV INFUSION ON DAYS 1/2 (DOSE SPLIT OVER 2 CONSECUTIVE DAYS; 100 MG ON DAY 1
     Route: 042
     Dates: start: 20140929, end: 20140929
  2. OBINUTUZUMAB. [Suspect]
     Active Substance: OBINUTUZUMAB
     Dosage: C2D1
     Route: 042
     Dates: start: 20141118, end: 20141118
  3. FLUDARABINE [Suspect]
     Active Substance: FLUDARABINE PHOSPHATE
     Dosage: C1D2
     Route: 042
     Dates: start: 20140930, end: 20140930
  4. FLUDARABINE [Suspect]
     Active Substance: FLUDARABINE PHOSPHATE
     Dosage: C3D2
     Route: 042
     Dates: start: 20141218, end: 20141218
  5. FLUDARABINE [Suspect]
     Active Substance: FLUDARABINE PHOSPHATE
     Dosage: C6D1
     Route: 042
     Dates: start: 20150330, end: 20150330
  6. CYCLOPHOSPHAMIDE. [Suspect]
     Active Substance: CYCLOPHOSPHAMIDE
     Dosage: C2D3
     Route: 042
     Dates: start: 20141120, end: 20141120
  7. CYCLOPHOSPHAMIDE. [Suspect]
     Active Substance: CYCLOPHOSPHAMIDE
     Dosage: C3D3
     Route: 042
     Dates: start: 20141219, end: 20141219
  8. PARACETAMOL [Concomitant]
     Active Substance: ACETAMINOPHEN
     Route: 048
     Dates: start: 20141013, end: 20150629
  9. PARACETAMOL [Concomitant]
     Active Substance: ACETAMINOPHEN
     Dosage: SINGLE DOSE
     Route: 048
     Dates: start: 20140930, end: 20140930
  10. PARACETAMOL [Concomitant]
     Active Substance: ACETAMINOPHEN
     Dosage: SINGLE DOSE
     Route: 048
     Dates: start: 20141217, end: 20141217
  11. VALACICLOVIR [Concomitant]
     Active Substance: VALACYCLOVIR HYDROCHLORIDE
     Indication: PROPHYLAXIS
     Route: 048
     Dates: start: 20150929
  12. CLEMASTINE [Concomitant]
     Active Substance: CLEMASTINE
     Dosage: SINGLE DOSE
     Route: 042
     Dates: start: 20141217, end: 20141217
  13. ONDANSETRON [Concomitant]
     Active Substance: ONDANSETRON
     Dosage: SINGLE DOSE
     Route: 048
     Dates: start: 20141119, end: 20141119
  14. ONDANSETRON [Concomitant]
     Active Substance: ONDANSETRON
     Dosage: SINGLE DOSE
     Route: 048
     Dates: start: 20141217, end: 20141217
  15. ONDANSETRON [Concomitant]
     Active Substance: ONDANSETRON
     Dosage: SINGLE DOSE
     Route: 048
     Dates: start: 20150116, end: 20150116
  16. BUTYLSCOPOLAMINE [Concomitant]
     Active Substance: BUTYLSCOPOLAMINE
     Route: 048
     Dates: start: 20150405, end: 20150629
  17. TRAMADOL. [Concomitant]
     Active Substance: TRAMADOL
     Route: 048
     Dates: start: 201310, end: 20141001
  18. SODIUM CHLORIDE. [Concomitant]
     Active Substance: SODIUM CHLORIDE
     Dosage: SINGLE DOSE
     Route: 042
     Dates: start: 20141006, end: 20141006
  19. SODIUM CHLORIDE. [Concomitant]
     Active Substance: SODIUM CHLORIDE
     Dosage: SINGLE DOSE
     Route: 042
     Dates: start: 20141013, end: 20141013
  20. SODIUM CHLORIDE. [Concomitant]
     Active Substance: SODIUM CHLORIDE
     Dosage: SINGLE DOSE
     Route: 042
     Dates: start: 20141119, end: 20141119
  21. SODIUM CHLORIDE. [Concomitant]
     Active Substance: SODIUM CHLORIDE
     Dosage: SINGLE DOSE
     Route: 042
     Dates: start: 20141218, end: 20141218
  22. SODIUM CHLORIDE. [Concomitant]
     Active Substance: SODIUM CHLORIDE
     Dosage: SINGLE DOSE
     Route: 042
     Dates: start: 20150331, end: 20150331
  23. SODIUM CHLORIDE. [Concomitant]
     Active Substance: SODIUM CHLORIDE
     Dosage: SINGLE DOSE
     Route: 042
     Dates: start: 20150401, end: 20150401
  24. OBINUTUZUMAB. [Suspect]
     Active Substance: OBINUTUZUMAB
     Dosage: C1D8
     Route: 042
     Dates: start: 20141006, end: 20141006
  25. OBINUTUZUMAB. [Suspect]
     Active Substance: OBINUTUZUMAB
     Dosage: C3D1
     Route: 042
     Dates: start: 20141217, end: 20141217
  26. CYCLOPHOSPHAMIDE. [Suspect]
     Active Substance: CYCLOPHOSPHAMIDE
     Dosage: C3D2
     Route: 042
     Dates: start: 20141218, end: 20141218
  27. CYCLOPHOSPHAMIDE. [Suspect]
     Active Substance: CYCLOPHOSPHAMIDE
     Dosage: C4D1
     Route: 042
     Dates: start: 20150114, end: 20150114
  28. CYCLOPHOSPHAMIDE. [Suspect]
     Active Substance: CYCLOPHOSPHAMIDE
     Dosage: C5D1
     Route: 042
     Dates: start: 20150302, end: 20150302
  29. CYCLOPHOSPHAMIDE. [Suspect]
     Active Substance: CYCLOPHOSPHAMIDE
     Dosage: C5D3
     Route: 042
     Dates: start: 20150304, end: 20150304
  30. ALLOPURINOL. [Concomitant]
     Active Substance: ALLOPURINOL
     Indication: PROPHYLAXIS
     Route: 048
     Dates: start: 20140922, end: 20141013
  31. CLEMASTINE [Concomitant]
     Active Substance: CLEMASTINE
     Indication: PROPHYLAXIS
     Dosage: SINGLE DOSE
     Route: 042
     Dates: start: 20140929, end: 20140929
  32. CLEMASTINE [Concomitant]
     Active Substance: CLEMASTINE
     Dosage: SINGLE DOSE
     Route: 042
     Dates: start: 20140930, end: 20140930
  33. METHYLPREDNISOLONE. [Concomitant]
     Active Substance: METHYLPREDNISOLONE
     Indication: PROPHYLAXIS
     Dosage: SINGLE DOSE
     Route: 042
     Dates: start: 20140929, end: 20140929
  34. METHYLPREDNISOLONE. [Concomitant]
     Active Substance: METHYLPREDNISOLONE
     Dosage: SINGLE DOSE
     Route: 042
     Dates: start: 20140930, end: 20140930
  35. ONDANSETRON [Concomitant]
     Active Substance: ONDANSETRON
     Dosage: SINGLE DOSE
     Route: 048
     Dates: start: 20141001, end: 20141001
  36. RESYL PLUS [Concomitant]
     Active Substance: CODEINE PHOSPHATE\GUAIFENESIN
     Route: 048
     Dates: end: 20150629
  37. MOMETASONA FUROATO [Concomitant]
     Route: 045
     Dates: start: 20150701, end: 20150730
  38. PEPPERMINT OIL [Concomitant]
     Active Substance: PEPPERMINT OIL
     Indication: PROPHYLAXIS
     Route: 045
     Dates: start: 20140313
  39. CAMPHOR [Concomitant]
     Active Substance: CAMPHOR
     Indication: PROPHYLAXIS
     Route: 045
     Dates: start: 20140313
  40. SODIUM CHLORIDE. [Concomitant]
     Active Substance: SODIUM CHLORIDE
     Dosage: SINGLE DOSE
     Route: 042
     Dates: start: 20140930, end: 20140930
  41. SODIUM CHLORIDE. [Concomitant]
     Active Substance: SODIUM CHLORIDE
     Dosage: SINGLE DOSE
     Route: 042
     Dates: start: 20141001, end: 20141001
  42. SODIUM CHLORIDE. [Concomitant]
     Active Substance: SODIUM CHLORIDE
     Dosage: SINGLE DOSE
     Route: 042
     Dates: start: 20141217, end: 20141217
  43. SODIUM CHLORIDE. [Concomitant]
     Active Substance: SODIUM CHLORIDE
     Dosage: SINGLE DOSE
     Route: 042
     Dates: start: 20150114, end: 20150114
  44. BUDESONID [Concomitant]
     Active Substance: BUDESONIDE
     Route: 065
     Dates: start: 20160902
  45. OBINUTUZUMAB. [Suspect]
     Active Substance: OBINUTUZUMAB
     Dosage: C4D1
     Route: 042
     Dates: start: 20150114, end: 20150114
  46. FLUDARABINE [Suspect]
     Active Substance: FLUDARABINE PHOSPHATE
     Indication: CHRONIC LYMPHOCYTIC LEUKAEMIA
     Dosage: C1D1?FREQUENCY: EVERY DAY ON DAYS 1 TO 3 OF EACH 28-DAY CYCLE FROM CYCLE 1 TO CYCLE 6 AS PER INVETIG
     Route: 042
     Dates: start: 20140929, end: 20140929
  47. FLUDARABINE [Suspect]
     Active Substance: FLUDARABINE PHOSPHATE
     Dosage: C4D1
     Route: 042
     Dates: start: 20150114, end: 20150114
  48. CYCLOPHOSPHAMIDE. [Suspect]
     Active Substance: CYCLOPHOSPHAMIDE
     Indication: CHRONIC LYMPHOCYTIC LEUKAEMIA
     Dosage: C1D1?FREQUENCY: EVERY DAY ON DAYS 1 TO 3 OF EACH 28-DAY CYCLE FROM CYCLE 1 TO CYCLE 6 AS PER INVETIG
     Route: 042
     Dates: start: 20140929, end: 20140929
  49. CYCLOPHOSPHAMIDE. [Suspect]
     Active Substance: CYCLOPHOSPHAMIDE
     Dosage: C1D2
     Route: 042
     Dates: start: 20140930, end: 20140930
  50. CYCLOPHOSPHAMIDE. [Suspect]
     Active Substance: CYCLOPHOSPHAMIDE
     Dosage: C6D3?MOST RECENT DOSE PRIOR TO SAE
     Route: 042
     Dates: start: 20150401, end: 20150401
  51. PARACETAMOL [Concomitant]
     Active Substance: ACETAMINOPHEN
     Dosage: SINGLE DOSE
     Route: 048
     Dates: start: 20150114, end: 20150114
  52. PREDNISOLONE. [Concomitant]
     Active Substance: PREDNISOLONE
     Indication: PROPHYLAXIS
     Route: 048
     Dates: start: 20140922, end: 20140927
  53. METOCLOPRAMIDE. [Concomitant]
     Active Substance: METOCLOPRAMIDE
     Dosage: SINGLE DOSE
     Route: 042
     Dates: start: 20140929, end: 20140929
  54. ONDANSETRON [Concomitant]
     Active Substance: ONDANSETRON
     Indication: PROPHYLAXIS
     Dosage: SINGLE DOSE
     Route: 048
     Dates: start: 20140929, end: 20140929
  55. ONDANSETRON [Concomitant]
     Active Substance: ONDANSETRON
     Dosage: SINGLE DOSE
     Route: 048
     Dates: start: 20141118, end: 20141118
  56. ONDANSETRON [Concomitant]
     Active Substance: ONDANSETRON
     Route: 048
     Dates: start: 20150123, end: 20150211
  57. ONDANSETRON [Concomitant]
     Active Substance: ONDANSETRON
     Dosage: SINGLE DOSE
     Route: 048
     Dates: start: 20150330, end: 20150330
  58. SODIUM CHLORIDE. [Concomitant]
     Active Substance: SODIUM CHLORIDE
     Dosage: SINGLE DOSE
     Route: 042
     Dates: start: 20140930, end: 20140930
  59. SODIUM CHLORIDE. [Concomitant]
     Active Substance: SODIUM CHLORIDE
     Dosage: SINGLE DOSE
     Route: 042
     Dates: start: 20150115, end: 20150115
  60. SODIUM CHLORIDE. [Concomitant]
     Active Substance: SODIUM CHLORIDE
     Dosage: SINGLE DOSE
     Route: 042
     Dates: start: 20150116, end: 20150116
  61. SODIUM CHLORIDE. [Concomitant]
     Active Substance: SODIUM CHLORIDE
     Dosage: SINGLE DOSE
     Route: 042
     Dates: start: 20150304, end: 20150304
  62. TRAZODON [Concomitant]
     Active Substance: TRAZODONE HYDROCHLORIDE
     Route: 065
     Dates: start: 2016
  63. OBINUTUZUMAB. [Suspect]
     Active Substance: OBINUTUZUMAB
     Dosage: C1D15
     Route: 042
     Dates: start: 20141013, end: 20141013
  64. FLUDARABINE [Suspect]
     Active Substance: FLUDARABINE PHOSPHATE
     Dosage: C2D3
     Route: 042
     Dates: start: 20141120, end: 20141120
  65. FLUDARABINE [Suspect]
     Active Substance: FLUDARABINE PHOSPHATE
     Dosage: C4D2
     Route: 042
     Dates: start: 20150115, end: 20150115
  66. FLUDARABINE [Suspect]
     Active Substance: FLUDARABINE PHOSPHATE
     Dosage: C5D3
     Route: 042
     Dates: start: 20150304, end: 20150304
  67. FLUDARABINE [Suspect]
     Active Substance: FLUDARABINE PHOSPHATE
     Dosage: C6D3?MOST RECENT DOSE PRIOR TO SAE
     Route: 042
     Dates: start: 20150401, end: 20150401
  68. CYCLOPHOSPHAMIDE. [Suspect]
     Active Substance: CYCLOPHOSPHAMIDE
     Dosage: C3D1
     Route: 042
     Dates: start: 20141217, end: 20141217
  69. CYCLOPHOSPHAMIDE. [Suspect]
     Active Substance: CYCLOPHOSPHAMIDE
     Dosage: C6D1
     Route: 042
     Dates: start: 20150330, end: 20150330
  70. PARACETAMOL [Concomitant]
     Active Substance: ACETAMINOPHEN
     Dosage: SINGLE DOSE
     Route: 048
     Dates: start: 20140929, end: 20140929
  71. METHYLPREDNISOLONE. [Concomitant]
     Active Substance: METHYLPREDNISOLONE
     Dosage: SINGLE DOSE
     Route: 042
     Dates: start: 20141217, end: 20141217
  72. METHYLPREDNISOLONE. [Concomitant]
     Active Substance: METHYLPREDNISOLONE
     Dosage: SINGLE DOSE
     Route: 042
     Dates: start: 20150330, end: 20150330
  73. ONDANSETRON [Concomitant]
     Active Substance: ONDANSETRON
     Dosage: SINGLE DOSE
     Route: 048
     Dates: start: 20140930, end: 20140930
  74. ONDANSETRON [Concomitant]
     Active Substance: ONDANSETRON
     Dosage: SINGLE DOSE
     Route: 048
     Dates: start: 20141218, end: 20141218
  75. ONDANSETRON [Concomitant]
     Active Substance: ONDANSETRON
     Dosage: SINGLE DOSE
     Route: 048
     Dates: start: 20150331, end: 20150331
  76. OTRIVINE [Concomitant]
     Active Substance: XYLOMETAZOLINE HYDROCHLORIDE
     Route: 045
     Dates: start: 20150701, end: 20150730
  77. SODIUM CHLORIDE. [Concomitant]
     Active Substance: SODIUM CHLORIDE
     Route: 042
     Dates: start: 20141118, end: 20141118
  78. SODIUM CHLORIDE. [Concomitant]
     Active Substance: SODIUM CHLORIDE
     Dosage: SINGLE DOSE
     Route: 042
     Dates: start: 20150302, end: 20150302
  79. OBINUTUZUMAB. [Suspect]
     Active Substance: OBINUTUZUMAB
     Dosage: C1D2
     Route: 042
     Dates: start: 20140930, end: 20140930
  80. OBINUTUZUMAB. [Suspect]
     Active Substance: OBINUTUZUMAB
     Dosage: C5D1
     Route: 042
     Dates: start: 20150302, end: 20150302
  81. FLUDARABINE [Suspect]
     Active Substance: FLUDARABINE PHOSPHATE
     Dosage: C1D3
     Route: 042
     Dates: start: 20141001, end: 20141001
  82. FLUDARABINE [Suspect]
     Active Substance: FLUDARABINE PHOSPHATE
     Dosage: C5D1
     Route: 042
     Dates: start: 20150302, end: 20150302
  83. PARACETAMOL [Concomitant]
     Active Substance: ACETAMINOPHEN
     Dosage: SINGLE DOSE
     Route: 048
     Dates: start: 20141013, end: 20141013
  84. METOCLOPRAMIDE. [Concomitant]
     Active Substance: METOCLOPRAMIDE
     Route: 048
     Dates: start: 20150115, end: 20150118
  85. CLEMASTINE [Concomitant]
     Active Substance: CLEMASTINE
     Dosage: SINGLE DOSE
     Route: 042
     Dates: start: 20150330, end: 20150330
  86. METHYLPREDNISOLONE. [Concomitant]
     Active Substance: METHYLPREDNISOLONE
     Dosage: SINGLE DOSE
     Route: 042
     Dates: start: 20141013, end: 20141013
  87. ONDANSETRON [Concomitant]
     Active Substance: ONDANSETRON
     Dosage: SINGLE DOSE
     Route: 048
     Dates: start: 20141219, end: 20141219
  88. ONDANSETRON [Concomitant]
     Active Substance: ONDANSETRON
     Dosage: SINGLE DOSE
     Route: 048
     Dates: start: 20150304, end: 20150304
  89. ONDANSETRON [Concomitant]
     Active Substance: ONDANSETRON
     Dosage: SINGLE DOSE
     Route: 048
     Dates: start: 20150401, end: 20150401
  90. ZOLPIDEM [Concomitant]
     Active Substance: ZOLPIDEM\ZOLPIDEM TARTRATE
     Route: 048
     Dates: start: 2011, end: 20150423
  91. SODIUM CHLORIDE. [Concomitant]
     Active Substance: SODIUM CHLORIDE
     Dosage: SINGLE DOSE
     Route: 042
     Dates: start: 20140929, end: 20140929
  92. SODIUM CHLORIDE. [Concomitant]
     Active Substance: SODIUM CHLORIDE
     Dosage: SINGLE DOSE
     Route: 042
     Dates: start: 20140929, end: 20140929
  93. SODIUM CHLORIDE. [Concomitant]
     Active Substance: SODIUM CHLORIDE
     Dosage: SINGLE DOSE
     Route: 042
     Dates: start: 20141001, end: 20141001
  94. SODIUM CHLORIDE. [Concomitant]
     Active Substance: SODIUM CHLORIDE
     Dosage: SINGLE DOSE
     Route: 042
     Dates: start: 20141118, end: 20141118
  95. SODIUM CHLORIDE. [Concomitant]
     Active Substance: SODIUM CHLORIDE
     Dosage: SINGLE DOSE
     Route: 042
     Dates: start: 20141217, end: 20141217
  96. SODIUM CHLORIDE. [Concomitant]
     Active Substance: SODIUM CHLORIDE
     Dosage: SINGLE DOSE
     Route: 042
     Dates: start: 20150114, end: 20150114
  97. SODIUM CHLORIDE. [Concomitant]
     Active Substance: SODIUM CHLORIDE
     Dosage: SINGLE DOSE
     Route: 042
     Dates: start: 20150114, end: 20150114
  98. SODIUM CHLORIDE. [Concomitant]
     Active Substance: SODIUM CHLORIDE
     Dosage: SINGLE DOSE
     Route: 042
     Dates: start: 20150302, end: 20150302
  99. SODIUM CHLORIDE. [Concomitant]
     Active Substance: SODIUM CHLORIDE
     Dosage: SINGLE DOSE
     Route: 042
     Dates: start: 20150330, end: 20150330
  100. SIMETICON [Concomitant]
     Route: 048
     Dates: start: 20150114, end: 20150211
  101. SPASMO-CANULASE [Concomitant]
     Active Substance: AMYLASE\CELLULASE\GLUTAMIC ACID HYDROCHLORIDE\PANCRELIPASE\PEPSIN\PROTEASE
     Route: 048
     Dates: start: 20150114, end: 20150629
  102. FLUDARABINE [Suspect]
     Active Substance: FLUDARABINE PHOSPHATE
     Dosage: C3D1
     Route: 042
     Dates: start: 20141217, end: 20141217
  103. CYCLOPHOSPHAMIDE. [Suspect]
     Active Substance: CYCLOPHOSPHAMIDE
     Dosage: C2D1
     Route: 042
     Dates: start: 20141118, end: 20141118
  104. METOCLOPRAMIDE. [Concomitant]
     Active Substance: METOCLOPRAMIDE
     Indication: PROPHYLAXIS
     Route: 048
     Dates: start: 20140929, end: 20150123
  105. CLEMASTINE [Concomitant]
     Active Substance: CLEMASTINE
     Dosage: SINGLE DOSE
     Route: 042
     Dates: start: 20141013, end: 20141013
  106. METHYLPREDNISOLONE. [Concomitant]
     Active Substance: METHYLPREDNISOLONE
     Dosage: SINGLE DOSE
     Route: 042
     Dates: start: 20150302, end: 20150302
  107. ONDANSETRON [Concomitant]
     Active Substance: ONDANSETRON
     Dosage: SINGLE DOSE
     Route: 048
     Dates: start: 20141120, end: 20141120
  108. ONDANSETRON [Concomitant]
     Active Substance: ONDANSETRON
     Dosage: SINGLE DOSE
     Route: 048
     Dates: start: 20150303, end: 20150303
  109. SULFAMETHOXAZOLE/TRIMETHOPRIM [Concomitant]
     Active Substance: SULFAMETHOXAZOLE\TRIMETHOPRIM
     Indication: PROPHYLAXIS
     Dosage: 800MG/160MG
     Route: 048
     Dates: start: 20140929, end: 20150423
  110. SODIUM CHLORIDE. [Concomitant]
     Active Substance: SODIUM CHLORIDE
     Dosage: SINGLE DOSE
     Route: 042
     Dates: start: 20141013, end: 20141013
  111. OBINUTUZUMAB. [Suspect]
     Active Substance: OBINUTUZUMAB
     Dosage: DATE OF LAST DOSE PRIOR TO SAE.?C6D1
     Route: 042
     Dates: start: 20150330, end: 20150330
  112. FLUDARABINE [Suspect]
     Active Substance: FLUDARABINE PHOSPHATE
     Dosage: C2D1
     Route: 042
     Dates: start: 20141118, end: 20141118
  113. FLUDARABINE [Suspect]
     Active Substance: FLUDARABINE PHOSPHATE
     Dosage: C3D3
     Route: 042
     Dates: start: 20141219, end: 20141219
  114. FLUDARABINE [Suspect]
     Active Substance: FLUDARABINE PHOSPHATE
     Dosage: C4D3
     Route: 042
     Dates: start: 20150116, end: 20150116
  115. FLUDARABINE [Suspect]
     Active Substance: FLUDARABINE PHOSPHATE
     Dosage: C5D2
     Route: 042
     Dates: start: 20150303, end: 20150303
  116. FLUDARABINE [Suspect]
     Active Substance: FLUDARABINE PHOSPHATE
     Dosage: C6D2
     Route: 042
     Dates: start: 20150331, end: 20150331
  117. CYCLOPHOSPHAMIDE. [Suspect]
     Active Substance: CYCLOPHOSPHAMIDE
     Dosage: C1D3
     Route: 042
     Dates: start: 20141001, end: 20141001
  118. CYCLOPHOSPHAMIDE. [Suspect]
     Active Substance: CYCLOPHOSPHAMIDE
     Dosage: C2D2
     Route: 042
     Dates: start: 20141119, end: 20141119
  119. CYCLOPHOSPHAMIDE. [Suspect]
     Active Substance: CYCLOPHOSPHAMIDE
     Dosage: C4D2
     Route: 042
     Dates: start: 20150115, end: 20150115
  120. METOCLOPRAMIDE. [Concomitant]
     Active Substance: METOCLOPRAMIDE
     Dosage: SINGLE DOSE
     Route: 042
     Dates: start: 20141006, end: 20141006
  121. METHYLPREDNISOLONE. [Concomitant]
     Active Substance: METHYLPREDNISOLONE
     Dosage: SINGLE DOSE
     Route: 042
     Dates: start: 20150114, end: 20150114
  122. ONDANSETRON [Concomitant]
     Active Substance: ONDANSETRON
     Dosage: SINGLE DOSE
     Route: 048
     Dates: start: 20150114, end: 20150114
  123. ONDANSETRON [Concomitant]
     Active Substance: ONDANSETRON
     Dosage: SINGLE DOSE
     Route: 048
     Dates: start: 20150302, end: 20150302
  124. ACICLOVIR [Concomitant]
     Active Substance: ACYCLOVIR
     Indication: PROPHYLAXIS
     Route: 061
     Dates: start: 20140917, end: 20140922
  125. LEVOFLOXACIN. [Concomitant]
     Active Substance: LEVOFLOXACIN
     Route: 048
     Dates: start: 20150714, end: 20150718
  126. TRAMADOL. [Concomitant]
     Active Substance: TRAMADOL
     Route: 048
     Dates: start: 20141006, end: 20150629
  127. SODIUM CHLORIDE. [Concomitant]
     Active Substance: SODIUM CHLORIDE
     Dosage: SINGLE DOSE
     Route: 042
     Dates: start: 20150303, end: 20150303
  128. SODIUM CHLORIDE. [Concomitant]
     Active Substance: SODIUM CHLORIDE
     Dosage: SINGLE DOSE
     Route: 042
     Dates: start: 20150330, end: 20150330
  129. FLUDARABINE [Suspect]
     Active Substance: FLUDARABINE PHOSPHATE
     Dosage: C2D2
     Route: 042
     Dates: start: 20141119, end: 20141119
  130. CYCLOPHOSPHAMIDE. [Suspect]
     Active Substance: CYCLOPHOSPHAMIDE
     Dosage: C4D3
     Route: 042
     Dates: start: 20150116, end: 20150116
  131. CYCLOPHOSPHAMIDE. [Suspect]
     Active Substance: CYCLOPHOSPHAMIDE
     Dosage: C5D2
     Route: 042
     Dates: start: 20150303, end: 20150303
  132. CYCLOPHOSPHAMIDE. [Suspect]
     Active Substance: CYCLOPHOSPHAMIDE
     Dosage: C6D2
     Route: 042
     Dates: start: 20150331, end: 20150331
  133. BUDESONIDE/FORMOTEROL FUMARATE [Concomitant]
     Active Substance: BUDESONIDE\FORMOTEROL FUMARATE
     Dosage: 0.2/0.006 MG
     Route: 050
     Dates: start: 20150105, end: 20150123
  134. PARACETAMOL [Concomitant]
     Active Substance: ACETAMINOPHEN
     Route: 048
     Dates: start: 201310, end: 20141013
  135. PARACETAMOL [Concomitant]
     Active Substance: ACETAMINOPHEN
     Dosage: SINGLE DOSE
     Route: 048
     Dates: start: 20141118, end: 20141118
  136. PARACETAMOL [Concomitant]
     Active Substance: ACETAMINOPHEN
     Dosage: SINGLE DOSE
     Route: 048
     Dates: start: 20150330, end: 20150330
  137. METHYLPREDNISOLONE. [Concomitant]
     Active Substance: METHYLPREDNISOLONE
     Dosage: SINGLE DOSE
     Route: 042
     Dates: start: 20141006, end: 20141006
  138. METHYLPREDNISOLONE. [Concomitant]
     Active Substance: METHYLPREDNISOLONE
     Dosage: SINGLE DOSE
     Route: 042
     Dates: start: 20141118, end: 20141118
  139. DEXAMETHASONE. [Concomitant]
     Active Substance: DEXAMETHASONE
     Indication: PROPHYLAXIS
     Dosage: SAME DOSAGE GIVEN THE 29/SEP/2014, 30/SEP/2014,6/OCT/2014, 13/OCT/2014,18/NOV/2014, 17/DEC/2014, 14/
     Route: 065
     Dates: start: 20140928, end: 20140928
  140. ONDANSETRON [Concomitant]
     Active Substance: ONDANSETRON
     Dosage: SINGLE DOSE
     Route: 048
     Dates: start: 20150115, end: 20150115
  141. TRAMADOL. [Concomitant]
     Active Substance: TRAMADOL
     Route: 048
     Dates: start: 20141001, end: 20141006
  142. SODIUM CHLORIDE. [Concomitant]
     Active Substance: SODIUM CHLORIDE
     Dosage: SINGLE DOSE
     Route: 042
     Dates: start: 20141219, end: 20141219

REACTIONS (3)
  - Autoimmune disorder [Not Recovered/Not Resolved]
  - Hepatitis E [Recovered/Resolved]
  - Neutropenia [Recovered/Resolved]

NARRATIVE: CASE EVENT DATE: 20150730
